FAERS Safety Report 18160358 (Version 1)
Quarter: 2020Q3

REPORT INFORMATION
  Report Type: Spontaneous
  Country: CA (occurrence: CA)
  Receive Date: 20200818
  Receipt Date: 20200818
  Transmission Date: 20201103
  Serious: Yes (Other)
  Sender: FDA-Public Use
  Company Number: CA-TEVA-2020-CA-1814926

PATIENT
  Age: 56 Year
  Sex: Female

DRUGS (6)
  1. WARFARIN [Concomitant]
     Active Substance: WARFARIN
  2. OPSUMIT [Concomitant]
     Active Substance: MACITENTAN
  3. INSULIN [Concomitant]
     Active Substance: INSULIN NOS
  4. PAROXETINE HYDROCHLORIDE. [Concomitant]
     Active Substance: PAROXETINE HYDROCHLORIDE
  5. ZANTAC [Concomitant]
     Active Substance: RANITIDINE HYDROCHLORIDE
  6. SILDENAFIL CITRATE. [Suspect]
     Active Substance: SILDENAFIL CITRATE
     Indication: PULMONARY ARTERIAL HYPERTENSION
     Route: 048

REACTIONS (5)
  - Dizziness [Recovered/Resolved]
  - Loss of control of legs [Recovered/Resolved]
  - Nasal congestion [Recovered/Resolved]
  - Hyperventilation [Recovered/Resolved]
  - Presyncope [Recovered/Resolved]
